FAERS Safety Report 5185823-6 (Version None)
Quarter: 2006Q4

REPORT INFORMATION
  Report Type: 
  Country: None (occurrence: None)
  Receive Date: 20061220
  Receipt Date: 20060918
  Transmission Date: 20070319
  Serious: No
  Sender: FDA-Public Use
  Company Number: US-GLAXOSMITHKLINE-A0620441A

PATIENT
  Age: 82 Year
  Sex: Female

DRUGS (2)
  1. NICODERM CQ [Suspect]
     Dosage: 7MG PER DAY
     Route: 062
  2. NICODERM CQ [Suspect]
     Dosage: 14MG PER DAY
     Route: 062

REACTIONS (3)
  - APPLICATION SITE ERYTHEMA [None]
  - APPLICATION SITE PRURITUS [None]
  - HYPERSENSITIVITY [None]
